FAERS Safety Report 15826429 (Version 1)
Quarter: 2019Q1

REPORT INFORMATION
  Report Type: Spontaneous
  Country: US (occurrence: US)
  Receive Date: 20190115
  Receipt Date: 20190115
  Transmission Date: 20190417
  Serious: Yes (Other)
  Sender: FDA-Public Use
  Company Number: US-PFIZER INC-2019014449

PATIENT
  Age: 58 Year
  Sex: Female

DRUGS (12)
  1. ANIDULAFUNGIN [Suspect]
     Active Substance: ANIDULAFUNGIN
     Indication: MUCORMYCOSIS
     Dosage: UNK (PBD 21-33 AND PBD 43-72)
  2. ANIDULAFUNGIN [Suspect]
     Active Substance: ANIDULAFUNGIN
     Indication: CANDIDA INFECTION
  3. AMPHOTERICIN B. [Suspect]
     Active Substance: AMPHOTERICIN B
     Indication: MUCORMYCOSIS
     Dosage: UNK (PBD 43-72)
  4. HYDROCORTISONE ACETATE. [Concomitant]
     Active Substance: HYDROCORTISONE ACETATE
     Indication: SEPTIC SHOCK
     Dosage: UNK (EXTENDED COURSE OF STRESS DOSE HYDROCORTISONE, PBD 35-74)
  5. OXANDROLONE. [Suspect]
     Active Substance: OXANDROLONE
     Dosage: UNK (PBD 20-73)
  6. MEROPENEM. [Concomitant]
     Active Substance: MEROPENEM
     Indication: INFECTION
  7. AMIKACIN SULFATE. [Concomitant]
     Active Substance: AMIKACIN SULFATE
     Indication: MUCORMYCOSIS
     Dosage: UNK
  8. HEPARIN SODIUM. [Concomitant]
     Active Substance: HEPARIN SODIUM
     Indication: PULMONARY EMBOLISM
     Dosage: UNK (LOW-INTENSITY HEPARIN DRIP)
     Route: 041
  9. AMPHOTERICIN B. [Suspect]
     Active Substance: AMPHOTERICIN B
     Indication: CANDIDA INFECTION
  10. AMIKACIN SULFATE. [Concomitant]
     Active Substance: AMIKACIN SULFATE
     Indication: INFECTION
  11. MEROPENEM. [Concomitant]
     Active Substance: MEROPENEM
     Indication: MUCORMYCOSIS
     Dosage: UNK
  12. ISAVUCONAZOLE [Suspect]
     Active Substance: ISAVUCONAZOLE
     Indication: MUCORMYCOSIS
     Dosage: UNK (PBD 33-53)

REACTIONS (3)
  - Liver function test increased [Unknown]
  - Transaminases increased [Unknown]
  - Acute hepatic failure [Unknown]
